FAERS Safety Report 25181359 (Version 2)
Quarter: 2025Q2

REPORT INFORMATION
  Report Type: Spontaneous
  Country: US (occurrence: US)
  Receive Date: 20250410
  Receipt Date: 20250418
  Transmission Date: 20250717
  Serious: Yes (Hospitalization, Other)
  Sender: TEVA
  Company Number: US-TEVA-VS-3317313

PATIENT
  Age: 32 Year
  Sex: Female

DRUGS (2)
  1. CABERGOLINE [Suspect]
     Active Substance: CABERGOLINE
     Indication: Hyperprolactinaemia
     Route: 065
  2. HYDROXYCHLOROQUINE [Concomitant]
     Active Substance: HYDROXYCHLOROQUINE
     Indication: Rheumatoid arthritis
     Route: 065

REACTIONS (5)
  - Nausea [Unknown]
  - Malnutrition [Unknown]
  - Decreased appetite [Unknown]
  - Wernicke^s encephalopathy [Recovering/Resolving]
  - Vomiting [Unknown]
